FAERS Safety Report 24552032 (Version 1)
Quarter: 2024Q4

REPORT INFORMATION
  Report Type: Spontaneous
  Country: CA (occurrence: CA)
  Receive Date: 20241026
  Receipt Date: 20241026
  Transmission Date: 20250114
  Serious: Yes (Hospitalization)
  Sender: PRINSTON PHARMACEUTICAL
  Company Number: CA-PRINSTON PHARMACEUTICAL INC.-2024PRN00394

PATIENT
  Age: 52 Year
  Sex: Female

DRUGS (6)
  1. DULOXETINE [Suspect]
     Active Substance: DULOXETINE
     Indication: Sciatica
     Dosage: 60 MG, 1X/DAY
  2. DULOXETINE [Suspect]
     Active Substance: DULOXETINE
     Dosage: 30 MG, EVERY OTHER DAY
  3. XYLOMETAZOLINE [Suspect]
     Active Substance: XYLOMETAZOLINE
     Indication: Nasal congestion
     Dosage: UNK, 1X/DAY
     Route: 045
  4. XYLOMETAZOLINE [Suspect]
     Active Substance: XYLOMETAZOLINE
     Dosage: 2?3 TIMES DAILY, FOR 3 DOSES
     Route: 045
  5. BUDESONIDE [Concomitant]
     Active Substance: BUDESONIDE
  6. ALBUTEROL [Concomitant]
     Active Substance: ALBUTEROL
     Dosage: AS NEEDED

REACTIONS (1)
  - Reversible cerebral vasoconstriction syndrome [Recovered/Resolved]
